FAERS Safety Report 6149603-7 (Version None)
Quarter: 2009Q2

REPORT INFORMATION
  Report Type: 
  Country: None (occurrence: None)
  Receive Date: 20090409
  Receipt Date: 20090331
  Transmission Date: 20091009
  Serious: Yes (Other)
  Sender: FDA-Public Use
  Company Number: US-ROCHE-625007

PATIENT
  Sex: Male

DRUGS (3)
  1. PEG-INTERFERON A-2A (RO 25-8310) [Suspect]
     Indication: HEPATITIS C
     Dosage: FORM: PFS PATIENT IN WEEK 26
     Route: 065
     Dates: start: 20081003
  2. RIBAVIRIN [Suspect]
     Indication: HEPATITIS C
     Dosage: DIVIDED DOSES PATIENT IN WEEK 26
     Route: 065
     Dates: start: 20081003
  3. LEXAPRO [Concomitant]
     Indication: DEPRESSION

REACTIONS (1)
  - THROMBOSIS [None]
